FAERS Safety Report 6835878-5 (Version None)
Quarter: 2010Q3

REPORT INFORMATION
  Report Type: 
  Country: None (occurrence: None)
  Receive Date: 20100713
  Receipt Date: 20100709
  Transmission Date: 20110219
  Serious: Yes (Other)
  Sender: FDA-Public Use
  Company Number: A0869434A

PATIENT
  Age: 43 Year
  Sex: Female

DRUGS (1)
  1. ALLI [Suspect]
     Indication: WEIGHT LOSS DIET
     Route: 048
     Dates: start: 20100614, end: 20100709

REACTIONS (9)
  - ABDOMINAL PAIN UPPER [None]
  - COLD SWEAT [None]
  - DYSURIA [None]
  - MOTOR DYSFUNCTION [None]
  - NEPHROLITHIASIS [None]
  - PAIN [None]
  - PELVIC PAIN [None]
  - TREMOR [None]
  - VOMITING [None]
